FAERS Safety Report 15265704 (Version 1)
Quarter: 2018Q3

REPORT INFORMATION
  Report Type: Spontaneous
  Country: CN (occurrence: CN)
  Receive Date: 20180810
  Receipt Date: 20180810
  Transmission Date: 20181010
  Serious: Yes (Other)
  Sender: FDA-Public Use
  Company Number: CN-JNJFOC-20180805457

PATIENT
  Age: 53 Year
  Sex: Female
  Weight: 54 kg

DRUGS (2)
  1. VITAMIN B [Concomitant]
     Active Substance: VITAMIN B
     Route: 065
  2. SPORANOX [Suspect]
     Active Substance: ITRACONAZOLE
     Indication: DERMATOPHYTOSIS OF NAIL
     Route: 065
     Dates: start: 201804

REACTIONS (4)
  - Helicobacter infection [Unknown]
  - Prescription drug used without a prescription [Unknown]
  - Gastric dilatation [Recovering/Resolving]
  - Product use issue [Unknown]

NARRATIVE: CASE EVENT DATE: 20180801
